FAERS Safety Report 17903381 (Version 4)
Quarter: 2020Q3

REPORT INFORMATION
  Report Type: Spontaneous
  Country: US (occurrence: US)
  Receive Date: 20200616
  Receipt Date: 20200813
  Transmission Date: 20201103
  Serious: No
  Sender: FDA-Public Use
  Company Number: US-PHARMING-PHAUS2020000237

PATIENT

DRUGS (2)
  1. RUCONEST [Suspect]
     Active Substance: HUMAN C1-ESTERASE INHIBITOR
     Indication: HEREDITARY ANGIOEDEMA
     Dosage: 18 MILLILITER, AS NEEDED
     Route: 042
     Dates: start: 20160915
  2. RUCONEST [Suspect]
     Active Substance: HUMAN C1-ESTERASE INHIBITOR
     Dosage: 2700 IU INTERNATIONAL UNIT(S), AS NEEDED
     Route: 042
     Dates: start: 20160915

REACTIONS (1)
  - Product use in unapproved indication [Unknown]
